FAERS Safety Report 5497593-2 (Version None)
Quarter: 2007Q4

REPORT INFORMATION
  Report Type: 
  Country: None (occurrence: None)
  Receive Date: 20071025
  Receipt Date: 20061213
  Transmission Date: 20080405
  Serious: No
  Sender: FDA-Public Use
  Company Number: A0631454A

PATIENT
  Age: 12 Year
  Sex: Male

DRUGS (3)
  1. ADVAIR DISKUS 100/50 [Suspect]
     Indication: ASTHMA
     Dosage: 1PUFF PER DAY
     Route: 055
     Dates: start: 20020101
  2. SINGULAIR [Concomitant]
  3. XOPENEX [Concomitant]

REACTIONS (7)
  - DIARRHOEA [None]
  - FATIGUE [None]
  - HEADACHE [None]
  - HYPOAESTHESIA [None]
  - INSOMNIA [None]
  - NAUSEA [None]
  - PAIN IN EXTREMITY [None]
